FAERS Safety Report 7306218-2 (Version None)
Quarter: 2011Q1

REPORT INFORMATION
  Report Type: 
  Country: None (occurrence: None)
  Receive Date: 20110222
  Receipt Date: 20110214
  Transmission Date: 20110831
  Serious: Yes (Other)
  Sender: FDA-Public Use
  Company Number: DE-JNJFOC-20110106433

PATIENT
  Age: 65 Year
  Sex: Female
  Weight: 60 kg

DRUGS (6)
  1. PRESOMEN [Concomitant]
     Dosage: 6 MG CONJUGATED ESTROGENS /2 MG MEDROGESTON ONCE DAILY EVERY 2 DAYS SINCE 2009
  2. MYFORTIC [Concomitant]
     Indication: SYMPATHETIC OPHTHALMIA
  3. REMICADE [Suspect]
     Indication: SYMPATHETIC OPHTHALMIA
     Route: 042
  4. RANITIDINE HCL [Concomitant]
  5. PRESOMEN [Concomitant]
     Dosage: 3 MG CONJUGATED ESTROGEN/5 MG MEDROGESTON BEFORE 2007 TO 2008
  6. APROVEL [Concomitant]

REACTIONS (1)
  - VISION BLURRED [None]
